FAERS Safety Report 11576987 (Version 2)
Quarter: 2015Q4

REPORT INFORMATION
  Report Type: Spontaneous
  Country: SE (occurrence: SE)
  Receive Date: 20150930
  Receipt Date: 20151006
  Transmission Date: 20160304
  Serious: Yes (Hospitalization)
  Sender: FDA-Public Use
  Company Number: SE-GLAXOSMITHKLINE-SE2015135420

PATIENT
  Age: 22 Year
  Sex: Female

DRUGS (15)
  1. THERALEN [Suspect]
     Active Substance: TRIMEPRAZINE
     Dosage: 0.5 ML, UNK
  2. CIPRALEX [Concomitant]
     Active Substance: ESCITALOPRAM OXALATE
  3. OXASCAND [Concomitant]
     Active Substance: OXAZEPAM
  4. ATARAX [Concomitant]
     Active Substance: HYDROXYZINE\HYDROXYZINE HYDROCHLORIDE
  5. ABILIFY [Concomitant]
     Active Substance: ARIPIPRAZOLE
  6. IMOVANE [Suspect]
     Active Substance: ZOPICLONE
     Dates: start: 2014
  7. LORATADINE. [Concomitant]
     Active Substance: LORATADINE
  8. ALVEDON [Concomitant]
     Active Substance: ACETAMINOPHEN
  9. PROMETHAZINE [Concomitant]
     Active Substance: PROMETHAZINE\PROMETHAZINE HYDROCHLORIDE
  10. VENTOLINE [Concomitant]
     Active Substance: ALBUTEROL
  11. STILNOCT [Concomitant]
     Active Substance: ZOLPIDEM TARTRATE
  12. CIRCADIN [Concomitant]
     Active Substance: MELATONIN
  13. MIRTAZAPINE. [Concomitant]
     Active Substance: MIRTAZAPINE
  14. LYRICA [Concomitant]
     Active Substance: PREGABALIN
  15. VOXRA [Suspect]
     Active Substance: BUPROPION HYDROCHLORIDE

REACTIONS (9)
  - Ulcer [Not Recovered/Not Resolved]
  - Headache [Not Recovered/Not Resolved]
  - Dysgeusia [Not Recovered/Not Resolved]
  - Pruritus [Not Recovered/Not Resolved]
  - Anxiety [Not Recovered/Not Resolved]
  - Hallucination, auditory [Not Recovered/Not Resolved]
  - Arthralgia [Not Recovered/Not Resolved]
  - Hallucination, visual [Not Recovered/Not Resolved]
  - Sleep disorder [Not Recovered/Not Resolved]

NARRATIVE: CASE EVENT DATE: 2014
